FAERS Safety Report 8490016-0 (Version None)
Quarter: 2012Q3

REPORT INFORMATION
  Report Type: 
  Country: None (occurrence: None)
  Receive Date: 20120705
  Receipt Date: 20120625
  Transmission Date: 20120928
  Serious: Yes (Hospitalization)
  Sender: FDA-Public Use
  Company Number: US-CELGENEUS-163-21880-12063557

PATIENT
  Sex: Female
  Weight: 68.1 kg

DRUGS (7)
  1. REVLIMID [Suspect]
     Indication: MULTIPLE MYELOMA
     Dosage: 15 MILLIGRAM
     Route: 048
     Dates: start: 20120207, end: 20120521
  2. ACYCLOVIR [Concomitant]
     Route: 065
     Dates: start: 20120101, end: 20120501
  3. METOPROLOL SUCCINATE [Concomitant]
     Route: 065
     Dates: start: 20120101, end: 20120501
  4. VELCADE [Concomitant]
     Route: 065
     Dates: start: 20120101, end: 20120521
  5. DECADRON [Concomitant]
     Route: 065
     Dates: start: 20120101, end: 20120521
  6. LASIX [Concomitant]
     Route: 065
     Dates: start: 20120101, end: 20120501
  7. OMEPRAZOLE [Concomitant]
     Route: 065
     Dates: start: 20120101, end: 20120501

REACTIONS (1)
  - COLONIC OBSTRUCTION [None]
